FAERS Safety Report 5906992-3 (Version None)
Quarter: 2008Q4

REPORT INFORMATION
  Report Type: 
  Country: None (occurrence: None)
  Receive Date: 20081002
  Receipt Date: 20081002
  Transmission Date: 20090506
  Serious: No
  Sender: FDA-Public Use
  Company Number: None

PATIENT
  Sex: Female
  Weight: 73.0291 kg

DRUGS (7)
  1. VOLTAREN [Suspect]
     Indication: OSTEOARTHRITIS
     Dosage: 4G TOP
     Route: 061
     Dates: start: 20080926, end: 20080929
  2. ACTONEL [Concomitant]
  3. AGGRENOX [Concomitant]
  4. ALTACE [Concomitant]
  5. ZOLOFT [Concomitant]
  6. ZETIA [Concomitant]
  7. FUROSEMIDE [Concomitant]

REACTIONS (2)
  - DYSPNOEA [None]
  - FLUSHING [None]
